FAERS Safety Report 23513424 (Version 1)
Quarter: 2024Q1

REPORT INFORMATION
  Report Type: Spontaneous
  Country: CA (occurrence: CA)
  Receive Date: 20240212
  Receipt Date: 20240212
  Transmission Date: 20240410
  Serious: Yes (Other)
  Sender: FDA-Public Use
  Company Number: CA-PFIZER INC-202400035733

PATIENT
  Sex: Female
  Weight: 59 kg

DRUGS (10)
  1. XELJANZ [Suspect]
     Active Substance: TOFACITINIB CITRATE
     Dosage: 5 MG, 1 EVERY 5 DAYS
     Route: 048
  2. METHOTREXATE SODIUM [Suspect]
     Active Substance: METHOTREXATE SODIUM
     Dosage: 25 MG, WEEKLY
     Route: 058
  3. METHOTREXATE SODIUM [Suspect]
     Active Substance: METHOTREXATE SODIUM
     Dosage: 15 MG, WEEKLY
     Route: 048
  4. RITUXIMAB [Suspect]
     Active Substance: RITUXIMAB
     Dosage: 1 DF
     Route: 065
  5. ACTEMRA [Suspect]
     Active Substance: TOCILIZUMAB
     Dosage: 162 MG, WEEKLY
     Route: 058
  6. HUMIRA [Suspect]
     Active Substance: ADALIMUMAB
     Dosage: 40 MG, 1 EVERY 2 WEEKS
     Route: 058
  7. LEFLUNOMIDE [Suspect]
     Active Substance: LEFLUNOMIDE
     Dosage: UNK
     Route: 065
  8. REMICADE [Suspect]
     Active Substance: INFLIXIMAB
     Dosage: UNK
     Route: 065
  9. ADVIL [Concomitant]
     Active Substance: IBUPROFEN
     Dosage: UNK
     Route: 065
  10. TETANUS TOXOIDS [Concomitant]
     Active Substance: TETANUS TOXOIDS
     Dosage: UNK
     Route: 065

REACTIONS (10)
  - Alopecia [Unknown]
  - Colon cancer [Unknown]
  - Drug ineffective [Unknown]
  - Hypertension [Unknown]
  - Mouth ulceration [Unknown]
  - Oedema peripheral [Unknown]
  - Osteoporotic fracture [Unknown]
  - Pneumonitis [Unknown]
  - Therapeutic product effect decreased [Unknown]
  - Uterine polyp [Unknown]
